FAERS Safety Report 9440702 (Version 4)
Quarter: 2014Q4

REPORT INFORMATION
  Report Type: Spontaneous
  Country: US (occurrence: None)
  Receive Date: 20130801
  Receipt Date: 20141110
  Transmission Date: 20150529
  Serious: Yes (Hospitalization, Other)
  Sender: FDA-Public Use
  Company Number: JPI-P-033839

PATIENT
  Age: 62 Year
  Sex: Male
  Weight: 84.1 kg

DRUGS (17)
  1. LIPITOR ATORVASTATIN CALCIUM [Concomitant]
  2. DENTURE CREAM WITH ZINC [Suspect]
     Active Substance: ZINC\ZINC CHLORIDE
  3. HYDROCODONE [Concomitant]
     Active Substance: HYDROCODONE
  4. PROMETHAZINE-CODEINE [Suspect]
     Active Substance: CODEINE PHOSPHATE\PROMETHAZINE
     Indication: MIGRAINE
     Route: 048
  5. ESCITALOPRAM OXALATE. [Concomitant]
     Active Substance: ESCITALOPRAM OXALATE
  6. VITAMIN B12 [Concomitant]
     Active Substance: CYANOCOBALAMIN
  7. LISINOPRIL. [Concomitant]
     Active Substance: LISINOPRIL
  8. CYCLOBENZAPRINE HYDROCHLORIDE. [Concomitant]
     Active Substance: CYCLOBENZAPRINE HYDROCHLORIDE
  9. METHYLPHENIDATE [Concomitant]
     Active Substance: METHYLPHENIDATE
  10. PREGABALIN. [Concomitant]
     Active Substance: PREGABALIN
  11. TESTOSTERONE. [Concomitant]
     Active Substance: TESTOSTERONE
  12. PREDNISONE (PREDNISONE) [Concomitant]
     Active Substance: PREDNISONE
  13. CETIRIZINE [Concomitant]
     Active Substance: CETIRIZINE HYDROCHLORIDE
  14. ESOMEPRAZOLE MAGNESIUM. [Concomitant]
     Active Substance: ESOMEPRAZOLE MAGNESIUM
  15. DICLOFENAC SODIUM. [Concomitant]
     Active Substance: DICLOFENAC SODIUM
  16. XYREM [Suspect]
     Active Substance: SODIUM OXYBATE
     Indication: NARCOLEPSY
     Route: 048
     Dates: start: 20070604
  17. DIAZEPAM (DIAZEPAM) [Concomitant]
     Active Substance: DIAZEPAM

REACTIONS (16)
  - Knee arthroplasty [None]
  - Toxicity to various agents [None]
  - Bone disorder [None]
  - Intentional product misuse [None]
  - Muscle swelling [None]
  - Insomnia [None]
  - Neuralgia [None]
  - Cartilage atrophy [None]
  - Poisoning [None]
  - Tarsal tunnel syndrome [None]
  - Neuropathy peripheral [None]
  - Blood testosterone decreased [None]
  - Depression [None]
  - Intervertebral disc protrusion [None]
  - Overdose [None]
  - Nervous system disorder [None]

NARRATIVE: CASE EVENT DATE: 201306
